FAERS Safety Report 8183668-6 (Version None)
Quarter: 2012Q1

REPORT INFORMATION
  Report Type: 
  Country: None (occurrence: None)
  Receive Date: 20120130
  Receipt Date: 20111018
  Transmission Date: 20120608
  Serious: Yes (Other)
  Sender: FDA-Public Use
  Company Number: 043698

PATIENT
  Age: 34 Year
  Sex: Male
  Weight: 93 kg

DRUGS (4)
  1. KEPPRA [Suspect]
     Indication: CONVULSION
     Dosage: 1500 MG BID ORAL
     Route: 048
  2. HYDROCHLOROTHIAZIDE [Concomitant]
  3. ZOSYN [Suspect]
     Indication: STAPHYLOCOCCAL INFECTION
     Dosage: 13.5 G, 13.5 G DAILY
     Dates: start: 20110907
  4. POTASSIUM CHLORIDE [Concomitant]

REACTIONS (1)
  - CONVULSION [None]
